FAERS Safety Report 5113975-2 (Version None)
Quarter: 2006Q3

REPORT INFORMATION
  Report Type: 
  Country: None (occurrence: None)
  Receive Date: 20060925
  Receipt Date: 20060713
  Transmission Date: 20061208
  Serious: Yes (Other)
  Sender: FDA-Public Use
  Company Number: PHNU2006DE02535

PATIENT
  Sex: Male

DRUGS (4)
  1. METHOTREXATE [Concomitant]
  2. DECORTIN [Concomitant]
  3. SANDIMMUNE [Suspect]
     Indication: RHEUMATOID ARTHRITIS
     Dosage: 250MG/DAY
  4. SANDIMMUNE [Suspect]
     Dosage: 125MG/DAY
     Dates: end: 20060709

REACTIONS (4)
  - BLOOD CREATININE INCREASED [None]
  - EYE DISORDER [None]
  - SCOTOMA [None]
  - VISION BLURRED [None]
